FAERS Safety Report 17332120 (Version 1)
Quarter: 2020Q1

REPORT INFORMATION
  Report Type: Spontaneous
  Country: IT (occurrence: IT)
  Receive Date: 20200128
  Receipt Date: 20200128
  Transmission Date: 20200409
  Serious: Yes (Other)
  Sender: FDA-Public Use
  Company Number: IT-SAMSUNG BIOEPIS-SB-2020-01672

PATIENT
  Age: 16 Year
  Sex: Female
  Weight: 48 kg

DRUGS (1)
  1. BENEPALI [Suspect]
     Active Substance: ETANERCEPT
     Indication: JUVENILE IDIOPATHIC ARTHRITIS
     Dosage: UNKNOWN
     Route: 058
     Dates: start: 20180403, end: 20191108

REACTIONS (4)
  - Conjunctival hyperaemia [Unknown]
  - Uveitis [Unknown]
  - Myalgia [Unknown]
  - Arthritis [Unknown]
